FAERS Safety Report 7280650-8 (Version None)
Quarter: 2011Q1

REPORT INFORMATION
  Report Type: 
  Country: None (occurrence: None)
  Receive Date: 20110208
  Receipt Date: 20110203
  Transmission Date: 20110831
  Serious: Yes (Hospitalization)
  Sender: FDA-Public Use
  Company Number: A0789144A

PATIENT
  Age: 71 Year
  Sex: Male
  Weight: 109.1 kg

DRUGS (1)
  1. AVANDIA [Suspect]
     Dosage: 8MG PER DAY
     Route: 048
     Dates: start: 20070310, end: 20080508

REACTIONS (2)
  - THROMBOSIS [None]
  - MYOCARDIAL INFARCTION [None]
